FAERS Safety Report 17606589 (Version 1)
Quarter: 2020Q1

REPORT INFORMATION
  Report Type: Spontaneous
  Country: IT (occurrence: IT)
  Receive Date: 20200331
  Receipt Date: 20200331
  Transmission Date: 20200409
  Serious: Yes (Other)
  Sender: FDA-Public Use
  Company Number: IT-MYLANLABS-2020M1034137

PATIENT
  Age: 5 Year
  Sex: Female

DRUGS (10)
  1. IRINOTECAN [Suspect]
     Active Substance: IRINOTECAN
     Indication: NEUROBLASTOMA
     Dosage: RESCUE THERAPY; IRINOTECAN FOR FIVE CONSECUTIVE DAYS EVERY 3 WEEKS
     Route: 042
  2. CARBOPLATIN. [Suspect]
     Active Substance: CARBOPLATIN
     Indication: NEUROBLASTOMA
     Dosage: SIOPEN NB-HR-01 PROTOCOL; 10 WEEKS OF INDUCTION CHEMOTHERAPY (COJEC SCHEME)
     Route: 065
     Dates: start: 201507
  3. MELPHALAN. [Suspect]
     Active Substance: MELPHALAN
     Indication: NEUROBLASTOMA
     Dosage: SIOPEN NB-HR-01 PROTOCOL
     Route: 065
     Dates: start: 2016
  4. CYCLOPHOSPHAMIDE. [Suspect]
     Active Substance: CYCLOPHOSPHAMIDE
     Indication: NEUROBLASTOMA
     Dosage: SIOPEN NB-HR-01 PROTOCOL; 10 WEEKS OF INDUCTION CHEMOTHERAPY (COJEC SCHEME)
     Route: 065
     Dates: start: 201507
  5. VINCRISTINE [Suspect]
     Active Substance: VINCRISTINE
     Indication: NEUROBLASTOMA
     Dosage: SIOPEN NB-HR-01 PROTOCOL; 10 WEEKS OF INDUCTION CHEMOTHERAPY (COJEC SCHEME)
     Route: 065
     Dates: start: 201507
  6. BUSULFAN. [Suspect]
     Active Substance: BUSULFAN
     Indication: NEUROBLASTOMA
     Dosage: SIOPEN NB-HR-01 PROTOCOL
     Route: 065
     Dates: start: 2016
  7. ETOPOSIDE. [Suspect]
     Active Substance: ETOPOSIDE
     Indication: NEUROBLASTOMA
     Dosage: SIOPEN NB-HR-01 PROTOCOL; 10 WEEKS OF INDUCTION CHEMOTHERAPY (COJEC SCHEME)
     Route: 065
     Dates: start: 201507
  8. TEMOZOLAMIDE TEVA [Suspect]
     Active Substance: TEMOZOLOMIDE
     Indication: NEUROBLASTOMA
     Dosage: RESCUE THERAPY; TEMOZOLOMIDE FOR FIVE CONSECUTIVE DAYS EVERY 3 WEEKS
     Route: 042
  9. DINUTUXIMAB [Suspect]
     Active Substance: DINUTUXIMAB
     Indication: NEUROBLASTOMA
     Dosage: SIOPEN NB-HR-01 PROTOCOL, SIX COURSES OF ANTI-GD2 ANTIBODY
     Route: 065
     Dates: start: 2016
  10. CISPLATIN. [Suspect]
     Active Substance: CISPLATIN
     Indication: NEUROBLASTOMA
     Dosage: SIOPEN NB-HR-01 PROTOCOL; 10 WEEKS OF INDUCTION CHEMOTHERAPY (COJEC SCHEME)
     Route: 065
     Dates: start: 201507

REACTIONS (3)
  - Fungaemia [Unknown]
  - Bone marrow toxicity [Unknown]
  - Drug ineffective [Unknown]

NARRATIVE: CASE EVENT DATE: 201603
